FAERS Safety Report 5473432-0 (Version None)
Quarter: 2007Q4

REPORT INFORMATION
  Report Type: 
  Country: None (occurrence: None)
  Receive Date: 20071001
  Receipt Date: 20070914
  Transmission Date: 20080405
  Serious: Yes (Other)
  Sender: FDA-Public Use
  Company Number: GB-ASTRAZENECA-2007SE05244

PATIENT
  Age: 67 Year
  Sex: Female
  Weight: 171 kg

DRUGS (10)
  1. AMIAS [Suspect]
     Indication: HYPERTENSION
     Route: 048
     Dates: start: 20070702, end: 20070704
  2. BENDROFLUMETHIAZIDE [Concomitant]
     Indication: HYPERTENSION
     Route: 048
     Dates: start: 20030815
  3. MOXONIDINE [Concomitant]
     Indication: HYPERTENSION
     Route: 048
     Dates: start: 20061216
  4. NAPROXEN [Concomitant]
     Indication: ARTHRITIS
     Route: 048
     Dates: start: 19880928
  5. NOVOMIX [Concomitant]
     Indication: DIABETES MELLITUS
     Route: 058
     Dates: start: 20030912
  6. PARACETAMOL [Concomitant]
     Indication: ARTHRITIS
     Route: 048
     Dates: start: 19960503
  7. PIOGLITAZONE [Concomitant]
     Indication: DIABETES MELLITUS
     Route: 048
     Dates: start: 20040517
  8. RAMIPRIL [Concomitant]
     Indication: HYPERTENSION
     Route: 048
     Dates: start: 20010914
  9. SIMVASTATIN [Concomitant]
     Indication: HYPERCHOLESTEROLAEMIA
     Route: 048
     Dates: start: 20041102
  10. INFUMORPH [Concomitant]
     Indication: ARTHRITIS
     Route: 048
     Dates: start: 20050506

REACTIONS (3)
  - LIP SWELLING [None]
  - SWELLING FACE [None]
  - VOMITING [None]
